FAERS Safety Report 4930143-5 (Version None)
Quarter: 2006Q1

REPORT INFORMATION
  Report Type: 
  Country: None (occurrence: None)
  Receive Date: 20060228
  Receipt Date: 20060224
  Transmission Date: 20060701
  Serious: Yes (Hospitalization)
  Sender: FDA-Public Use
  Company Number: CLOF-10053

PATIENT
  Age: 78 Year
  Sex: Male

DRUGS (2)
  1. CLOFARABINE [Suspect]
     Indication: ACUTE MYELOID LEUKAEMIA
     Dates: start: 20050426, end: 20050620
  2. CIPROFLOXACIN [Concomitant]

REACTIONS (7)
  - LOWER RESPIRATORY TRACT INFECTION [None]
  - NEPHROTIC SYNDROME [None]
  - NEUTROPENIC SEPSIS [None]
  - OEDEMA PERIPHERAL [None]
  - PULMONARY MYCOSIS [None]
  - RESPIRATORY TRACT INFECTION FUNGAL [None]
  - SCROTAL OEDEMA [None]
